FAERS Safety Report 7759321-7 (Version None)
Quarter: 2011Q3

REPORT INFORMATION
  Report Type: 
  Country: None (occurrence: None)
  Receive Date: 20110919
  Receipt Date: 20110831
  Transmission Date: 20111222
  Serious: No
  Sender: FDA-Public Use
  Company Number: US-B.I. PHARMACEUTICALS,INC./RIDGEFIELD-2011-BP-19251BP

PATIENT
  Sex: Female

DRUGS (6)
  1. DIOVAN [Concomitant]
  2. SIMVASTATIN [Concomitant]
  3. OXYBUTYNIN [Concomitant]
  4. ADVAIR DISKUS 100/50 [Concomitant]
  5. BYSTOLIC [Concomitant]
  6. SPIRIVA [Suspect]
     Indication: CHRONIC OBSTRUCTIVE PULMONARY DISEASE
     Dosage: 18 MCG

REACTIONS (1)
  - DRUG INEFFECTIVE [None]
